FAERS Safety Report 26124520 (Version 1)
Quarter: 2025Q4

REPORT INFORMATION
  Report Type: Spontaneous
  Country: US (occurrence: US)
  Receive Date: 20251205
  Receipt Date: 20251205
  Transmission Date: 20260117
  Serious: Yes (Life-Threatening)
  Sender: GE HEALTHCARE
  Company Number: US-GE HEALTHCARE-2025CSU016789

PATIENT
  Age: 80 Year
  Sex: Male
  Weight: 61.2 kg

DRUGS (3)
  1. VIZAMYL [Suspect]
     Active Substance: FLUTEMETAMOL F-18
     Indication: Positron emission tomogram
     Dosage: UNK, TOTAL
     Route: 042
     Dates: start: 20251125
  2. SALINE [Concomitant]
     Active Substance: SODIUM CHLORIDE
     Dosage: 10 ML, QD
     Route: 065
     Dates: start: 20251125, end: 20251125
  3. SALINE [Concomitant]
     Active Substance: SODIUM CHLORIDE
     Dosage: 10 ML, QD
     Route: 065
     Dates: start: 20251125, end: 20251125

REACTIONS (4)
  - Chest pain [Recovered/Resolved]
  - Dyspnoea [Recovered/Resolved]
  - Hot flush [Recovered/Resolved]
  - Blood pressure increased [Recovered/Resolved]

NARRATIVE: CASE EVENT DATE: 20251125
